FAERS Safety Report 9627956 (Version 4)
Quarter: 2013Q4

REPORT INFORMATION
  Report Type: Report from Study
  Country: BR (occurrence: BR)
  Receive Date: 20131016
  Receipt Date: 20131106
  Transmission Date: 20140711
  Serious: Yes (Other)
  Sender: FDA-Public Use
  Company Number: PHHY2013BR110703

PATIENT
  Age: 56 Year
  Sex: Female

DRUGS (7)
  1. GALVUS MET [Suspect]
     Indication: DIABETES MELLITUS
     Dosage: 1 DF (1000 MG VILD/50MG METF), UNK
  2. GALVUS MET [Suspect]
     Dosage: 1 DF (1000 MG VILD/50MG METF), PER DAY
  3. GALVUS MET [Suspect]
     Dosage: 1 DF (850 MG VILD/50MG METF), UNK
  4. XALATAN [Concomitant]
     Indication: GLAUCOMA
     Dosage: 1 DRP, QD (EVERY EYE)
  5. XALATAN [Concomitant]
     Indication: CATARACT
  6. ATENOLOL [Concomitant]
     Indication: HYPERTENSION
     Dosage: 25 MG, QD
     Route: 048
  7. SYNTHROID [Concomitant]
     Indication: HYPOTHYROIDISM
     Dosage: 112 MG, QD
     Route: 048

REACTIONS (6)
  - Diabetes mellitus [Unknown]
  - Nasal dryness [Not Recovered/Not Resolved]
  - Wound [Not Recovered/Not Resolved]
  - Pain [Recovering/Resolving]
  - Abdominal rigidity [Recovering/Resolving]
  - Limb discomfort [Not Recovered/Not Resolved]
